FAERS Safety Report 7435631-8 (Version None)
Quarter: 2011Q2

REPORT INFORMATION
  Report Type: 
  Country: None (occurrence: None)
  Receive Date: 20110425
  Receipt Date: 20110314
  Transmission Date: 20111010
  Serious: No
  Sender: FDA-Public Use
  Company Number: US-MYLANLABS-2011S1004153

PATIENT
  Age: 68 Year
  Sex: Female

DRUGS (13)
  1. CALTRATE + D /00188401/ [Concomitant]
  2. CARDURA [Concomitant]
  3. ZOCOR [Concomitant]
  4. DIOVAN [Concomitant]
  5. POTASSIUM [Concomitant]
  6. CENTRUM SILVER [Concomitant]
  7. HYDROCHLOROTHIAZIDE [Concomitant]
  8. CLONIDINE [Suspect]
     Route: 062
     Dates: start: 20110201
  9. TOPROL-XL [Concomitant]
  10. ALTACE [Concomitant]
  11. ASPIRIN [Concomitant]
  12. CLONIDINE [Suspect]
     Indication: BLOOD PRESSURE INCREASED
     Route: 062
     Dates: start: 20110101, end: 20110101
  13. MAGNESIUM [Concomitant]

REACTIONS (3)
  - APPLICATION SITE URTICARIA [None]
  - APPLICATION SITE PRURITUS [None]
  - APPLICATION SITE ERYTHEMA [None]
